FAERS Safety Report 8229027-9 (Version None)
Quarter: 2012Q1

REPORT INFORMATION
  Report Type: 
  Country: None (occurrence: None)
  Receive Date: 20120322
  Receipt Date: 20120313
  Transmission Date: 20120608
  Serious: Yes (Congenital Anomaly)
  Sender: FDA-Public Use
  Company Number: FR-BAYER-2012-025125

PATIENT

DRUGS (1)
  1. MOXIFLOXACIN HCL [Suspect]

REACTIONS (1)
  - LIMB MALFORMATION [None]
